FAERS Safety Report 5389615-4 (Version None)
Quarter: 2007Q3

REPORT INFORMATION
  Report Type: 
  Country: None (occurrence: None)
  Receive Date: 20070713
  Receipt Date: 20070629
  Transmission Date: 20080115
  Serious: Yes (Hospitalization)
  Sender: FDA-Public Use
  Company Number: CLOF-10593

PATIENT
  Age: 18 Year
  Sex: Male

DRUGS (2)
  1. CLOFARABINE. MFR: GENZYME [Suspect]
     Indication: ACUTE LYMPHOCYTIC LEUKAEMIA
     Dosage: 52 MG QD IV
     Route: 042
  2. CYTARABINE [Suspect]
     Indication: ACUTE LYMPHOCYTIC LEUKAEMIA

REACTIONS (6)
  - ALTERED STATE OF CONSCIOUSNESS [None]
  - APLASIA [None]
  - ARTHRITIS BACTERIAL [None]
  - BRAIN ABSCESS [None]
  - NEUTROPHIL COUNT DECREASED [None]
  - PYREXIA [None]
